FAERS Safety Report 7363999-X (Version None)
Quarter: 2011Q1

REPORT INFORMATION
  Report Type: 
  Country: None (occurrence: None)
  Receive Date: 20110321
  Receipt Date: 20100813
  Transmission Date: 20110831
  Serious: Yes (Hospitalization, Other)
  Sender: FDA-Public Use
  Company Number: US-BAYER-201016831NA

PATIENT
  Sex: Female
  Weight: 67.727 kg

DRUGS (12)
  1. WELCHOL [Concomitant]
  2. LOESTRIN 1.5/30 [Concomitant]
     Dosage: #100
     Dates: start: 20010101
  3. ORTHO TRI-CYCLEN [Concomitant]
     Dates: start: 19990101, end: 20000101
  4. LOESTRIN 1.5/30 [Concomitant]
     Dosage: 1.5/30
     Dates: start: 20000101
  5. NSAID'S [Concomitant]
  6. IMODIUM [Concomitant]
     Indication: DIARRHOEA
  7. YAZ [Suspect]
     Indication: PREMENSTRUAL SYNDROME
  8. YASMIN [Suspect]
     Indication: PRODUCT USED FOR UNKNOWN INDICATION
     Dates: start: 20020101, end: 20050101
  9. YAZ [Suspect]
     Indication: ORAL CONTRACEPTION
     Route: 048
     Dates: start: 20080401, end: 20090401
  10. LOESTRIN 1.5/30 [Concomitant]
     Dosage: 1.5/30
     Dates: start: 20000101
  11. LOESTRIN 1.5/30 [Concomitant]
     Dosage: #100
     Dates: start: 20010101
  12. LOESTRIN 1.5/30 [Concomitant]
     Dates: start: 20090524

REACTIONS (4)
  - CHOLECYSTITIS ACUTE [None]
  - CHOLECYSTITIS [None]
  - CHOLECYSTITIS CHRONIC [None]
  - BILIARY DYSKINESIA [None]
